FAERS Safety Report 13104075 (Version 2)
Quarter: 2017Q1

REPORT INFORMATION
  Report Type: Report from Study
  Country: DE (occurrence: DE)
  Receive Date: 20170111
  Receipt Date: 20170130
  Transmission Date: 20170428
  Serious: Yes (Death)
  Sender: FDA-Public Use
  Company Number: PHHY2017DE003460

PATIENT
  Sex: Male
  Weight: 91 kg

DRUGS (4)
  1. METFORMIN [Concomitant]
     Active Substance: METFORMIN HYDROCHLORIDE
     Indication: DIABETES MELLITUS
     Dosage: 850 MG, QD (850 MG/DAY 1-0-1)
     Route: 048
     Dates: start: 20160601
  2. METOHEXAL [Concomitant]
     Active Substance: METOPROLOL SUCCINATE
     Indication: HYPERTENSION
     Dosage: 190 MG, QD (190MG/DAY 1/2-0-0)
     Route: 065
     Dates: start: 20160101
  3. EXJADE [Suspect]
     Active Substance: DEFERASIROX
     Indication: THROMBOCYTOPENIA
     Dosage: UNK
     Route: 065
  4. EXJADE [Suspect]
     Active Substance: DEFERASIROX
     Indication: ACUTE MYELOID LEUKAEMIA
     Dosage: 1 DF, QD (5 MG/KG OF BODY WEIGHT, 1 TABLET OF 500MG A DAY)
     Route: 048
     Dates: start: 20160420

REACTIONS (1)
  - Cardiac failure [Fatal]

NARRATIVE: CASE EVENT DATE: 20161230
